FAERS Safety Report 6258220-X (Version None)
Quarter: 2009Q3

REPORT INFORMATION
  Report Type: 
  Country: None (occurrence: None)
  Receive Date: 20090702
  Receipt Date: 20090702
  Transmission Date: 20100115
  Serious: Yes (Life-Threatening, Hospitalization, Disabling)
  Sender: FDA-Public Use
  Company Number: None

PATIENT
  Age: 76 Year
  Sex: Male
  Weight: 113.8529 kg

DRUGS (2)
  1. PROMETHAZINE [Suspect]
     Indication: NAUSEA
     Dosage: 12.5MG ONCE IV BOLUS IV PUSH 1-2 MINUTES
     Route: 040
     Dates: start: 20090625, end: 20090625
  2. PROMETHAZINE [Suspect]
     Indication: VOMITING
     Dosage: 12.5MG ONCE IV BOLUS IV PUSH 1-2 MINUTES
     Route: 040
     Dates: start: 20090625, end: 20090625

REACTIONS (3)
  - RESPIRATORY ARREST [None]
  - UNRESPONSIVE TO STIMULI [None]
  - VENTRICULAR FIBRILLATION [None]
